FAERS Safety Report 12794148 (Version 1)
Quarter: 2016Q3

REPORT INFORMATION
  Report Type: Spontaneous
  Country: US (occurrence: US)
  Receive Date: 20160929
  Receipt Date: 20160929
  Transmission Date: 20161109
  Serious: No
  Sender: FDA-Public Use
  Company Number: US-JNJFOC-20151104854

PATIENT
  Age: 17 Year
  Sex: Male

DRUGS (3)
  1. RISPERDAL [Suspect]
     Active Substance: RISPERIDONE
     Indication: PRODUCT USED FOR UNKNOWN INDICATION
     Route: 048
  2. RISPERDAL [Suspect]
     Active Substance: RISPERIDONE
     Indication: PRODUCT USED FOR UNKNOWN INDICATION
     Dosage: EVERY MORNING
     Route: 048
     Dates: start: 2003, end: 2012
  3. INVEGA [Suspect]
     Active Substance: PALIPERIDONE
     Indication: PRODUCT USED FOR UNKNOWN INDICATION
     Dosage: 117MG-??156MG
     Route: 048
     Dates: start: 2013, end: 2014

REACTIONS (8)
  - Hyperprolactinaemia [Unknown]
  - Galactorrhoea [Unknown]
  - Depressed mood [Unknown]
  - Gynaecomastia [Unknown]
  - Feeling abnormal [Unknown]
  - Insomnia [Unknown]
  - Abnormal weight gain [Unknown]
  - Anxiety [Unknown]

NARRATIVE: CASE EVENT DATE: 2004
